FAERS Safety Report 8356462-0 (Version None)
Quarter: 2012Q2

REPORT INFORMATION
  Report Type: 
  Country: None (occurrence: None)
  Receive Date: 20120514
  Receipt Date: 20120503
  Transmission Date: 20120825
  Serious: Yes (Hospitalization)
  Sender: FDA-Public Use
  Company Number: TR-SANOFI-AVENTIS-2012SA031269

PATIENT
  Age: 73 Year
  Sex: Male

DRUGS (3)
  1. DOCETAXEL [Concomitant]
     Indication: PROSTATE CANCER
  2. CABAZITAXEL [Suspect]
     Indication: PROSTATE CANCER
     Dosage: OVER 1 HR FOR THE FIRST DAY
     Route: 042
  3. PREDNISOLONE [Concomitant]
     Indication: PROSTATE CANCER
     Route: 048

REACTIONS (8)
  - CHEST PAIN [None]
  - TROPONIN I INCREASED [None]
  - BLOOD CREATINE PHOSPHOKINASE MB INCREASED [None]
  - HYPOTENSION [None]
  - ANGINA PECTORIS [None]
  - MYOCARDIAL INFARCTION [None]
  - ACUTE MYOCARDIAL INFARCTION [None]
  - THROMBOSIS IN DEVICE [None]
